FAERS Safety Report 10994776 (Version 1)
Quarter: 2015Q2

REPORT INFORMATION
  Report Type: Spontaneous
  Country: DE (occurrence: DE)
  Receive Date: 20150407
  Receipt Date: 20150407
  Transmission Date: 20150821
  Serious: Yes (Other)
  Sender: FDA-Public Use
  Company Number: PHHY2015DE041330

PATIENT
  Age: 50 Year
  Sex: Male

DRUGS (2)
  1. LEFLUNOMIDE. [Suspect]
     Active Substance: LEFLUNOMIDE
     Indication: PSORIATIC ARTHROPATHY
     Dosage: 20 MG, QD
     Route: 065
  2. FUMARIC ACID [Suspect]
     Active Substance: FUMARIC ACID
     Indication: PSORIATIC ARTHROPATHY
     Dosage: 480 MG, UNK
     Route: 065

REACTIONS (5)
  - Clear cell renal cell carcinoma [Unknown]
  - Flushing [Unknown]
  - Abdominal discomfort [Unknown]
  - Lymphocyte count decreased [Unknown]
  - Gamma-glutamyltransferase increased [Unknown]
